FAERS Safety Report 4894763-9 (Version None)
Quarter: 2006Q1

REPORT INFORMATION
  Report Type: 
  Country: None (occurrence: None)
  Receive Date: 20060126
  Receipt Date: 20060126
  Transmission Date: 20060701
  Serious: Yes (Hospitalization)
  Sender: FDA-Public Use
  Company Number: None

PATIENT
  Sex: Female
  Weight: 53.978 kg

DRUGS (2)
  1. DOCETAXEL [Suspect]
     Indication: BREAST CANCER METASTATIC
     Dosage: IV
     Route: 042
     Dates: start: 20051208, end: 20051227
  2. GEMCITABINE [Suspect]
     Indication: BREAST CANCER METASTATIC
     Dosage: IV
     Route: 042
     Dates: start: 20051208, end: 20060103

REACTIONS (4)
  - DISEASE PROGRESSION [None]
  - DIZZINESS [None]
  - NAUSEA [None]
  - VOMITING [None]
